FAERS Safety Report 4304442-4 (Version None)
Quarter: 2004Q1

REPORT INFORMATION
  Report Type: 
  Country: None (occurrence: None)
  Receive Date: 20040224
  Receipt Date: 20040211
  Transmission Date: 20041129
  Serious: No
  Sender: FDA-Public Use
  Company Number: 2004SE00738

PATIENT
  Age: 64 Year

DRUGS (3)
  1. ATACAND [Suspect]
     Indication: HYPERTENSION
     Dosage: 16 MG DAILY PO
     Route: 048
     Dates: start: 20031126, end: 20031210
  2. NEXIUM [Concomitant]
  3. SELOZIDE [Concomitant]

REACTIONS (1)
  - ANAL HAEMORRHAGE [None]
